FAERS Safety Report 18060591 (Version 2)
Quarter: 2021Q2

REPORT INFORMATION
  Report Type: Spontaneous
  Country: None (occurrence: US)
  Receive Date: 20200723
  Receipt Date: 20210514
  Transmission Date: 20210717
  Serious: Yes (Other)
  Sender: FDA-Public Use
  Company Number: US-GLAXOSMITHKLINE-US2020139388

PATIENT
  Sex: Male

DRUGS (5)
  1. ZANTAC [Suspect]
     Active Substance: RANITIDINE HYDROCHLORIDE
  2. ZANTAC [Suspect]
     Active Substance: RANITIDINE HYDROCHLORIDE
     Indication: PYLORIC STENOSIS
     Dosage: UNK UNK, QD
     Route: 065
     Dates: start: 200203, end: 201905
  3. RANITIDINE. [Suspect]
     Active Substance: RANITIDINE
  4. RANITIDINE. [Suspect]
     Active Substance: RANITIDINE
     Indication: PYLORIC STENOSIS
     Dosage: UNKNOWN AT THS TIME PRESCRIPTION
     Route: 065
  5. RANITIDINE CAPSULE [Suspect]
     Active Substance: RANITIDINE
     Indication: PYLORIC STENOSIS
     Dosage: UNK UNK, QD
     Route: 065
     Dates: start: 200203, end: 201905

REACTIONS (1)
  - Renal cancer [Unknown]
